FAERS Safety Report 17193050 (Version 1)
Quarter: 2019Q4

REPORT INFORMATION
  Report Type: Spontaneous
  Country: US (occurrence: US)
  Receive Date: 20191223
  Receipt Date: 20191223
  Transmission Date: 20200122
  Serious: No
  Sender: FDA-Public Use
  Company Number: US-SA-2019SA351331

PATIENT
  Age: 6 Year
  Sex: Male

DRUGS (1)
  1. DUPIXENT [Suspect]
     Active Substance: DUPILUMAB
     Indication: DERMATITIS ATOPIC
     Dosage: UNK UNK, QOW
     Route: 058
     Dates: start: 20191011

REACTIONS (5)
  - Nasopharyngitis [Recovered/Resolved]
  - Rhinorrhoea [Recovered/Resolved]
  - Pruritus [Unknown]
  - Nasal congestion [Recovered/Resolved]
  - Gastroenteritis viral [Recovered/Resolved]

NARRATIVE: CASE EVENT DATE: 201911
